FAERS Safety Report 4302143-X (Version None)
Quarter: 2004Q1

REPORT INFORMATION
  Report Type: 
  Country: None (occurrence: None)
  Receive Date: 20040126
  Receipt Date: 20031007
  Transmission Date: 20041129
  Serious: No
  Sender: FDA-Public Use
  Company Number: USA031049293

PATIENT
  Age: 12 Year
  Sex: Male
  Weight: 33 kg

DRUGS (2)
  1. STRATTERA [Suspect]
     Indication: ATTENTION DEFICIT/HYPERACTIVITY DISORDER
     Dosage: 40 MG/DAY
     Dates: start: 20031003
  2. ROBITUSSIN-DM [Concomitant]

REACTIONS (3)
  - ABDOMINAL PAIN UPPER [None]
  - LETHARGY [None]
  - RHINORRHOEA [None]
